FAERS Safety Report 14664134 (Version 1)
Quarter: 2018Q1

REPORT INFORMATION
  Report Type: Spontaneous
  Country: US (occurrence: US)
  Receive Date: 20180319
  Receipt Date: 20180319
  Transmission Date: 20180509
  Serious: No
  Sender: FDA-Public Use
  Company Number: None

PATIENT
  Age: 52 Year
  Sex: Female

DRUGS (1)
  1. HUMIRA [Suspect]
     Active Substance: ADALIMUMAB
     Indication: PRODUCT USED FOR UNKNOWN INDICATION
     Route: 058
     Dates: start: 20161220

REACTIONS (6)
  - Bronchitis [None]
  - Eating disorder [None]
  - Thrombosis [None]
  - Gastrointestinal haemorrhage [None]
  - Crohn^s disease [None]
  - Oedema [None]
